FAERS Safety Report 8180301-4 (Version None)
Quarter: 2012Q1

REPORT INFORMATION
  Report Type: 
  Country: None (occurrence: None)
  Receive Date: 20120302
  Receipt Date: 20120221
  Transmission Date: 20120608
  Serious: Yes (Hospitalization)
  Sender: FDA-Public Use
  Company Number: KR-BAXTER-2012BH005290

PATIENT
  Age: 21 Year
  Sex: Female
  Weight: 67 kg

DRUGS (12)
  1. AMLODIPINE [Concomitant]
     Indication: HYPERTENSION
     Route: 048
     Dates: start: 20100524
  2. FOLIC ACID [Concomitant]
     Indication: VITAMIN SUPPLEMENTATION
     Route: 048
     Dates: start: 20110516
  3. VITAMIN B-COMPLEX WITH VITAMIN C [Concomitant]
     Indication: VITAMIN SUPPLEMENTATION
     Route: 048
     Dates: start: 20110525
  4. DIANEAL [Suspect]
     Indication: PERITONEAL DIALYSIS
     Route: 033
     Dates: start: 20110506
  5. CALCIUM ACETATE [Concomitant]
     Indication: HYPERPHOSPHATAEMIA
     Route: 048
     Dates: start: 20110622
  6. DIANEAL [Suspect]
     Indication: RENAL FAILURE CHRONIC
     Route: 033
     Dates: start: 20110506
  7. RECORMON PS [Concomitant]
     Indication: ANAEMIA
     Route: 058
     Dates: start: 20111116
  8. CALCITRIOL [Concomitant]
     Indication: VITAMIN D DEFICIENCY
     Route: 048
     Dates: start: 20111116
  9. MOTILIUM-M [Concomitant]
     Indication: PRODUCT USED FOR UNKNOWN INDICATION
     Route: 048
     Dates: start: 20110307
  10. CRESTOR [Concomitant]
     Indication: HYPERLIPIDAEMIA
     Route: 048
     Dates: start: 20110921
  11. SODIUM BICARBONATE [Concomitant]
     Indication: URINARY TRACT DISORDER
     Route: 048
     Dates: start: 20100312
  12. ENALAPRIL MALEATE [Concomitant]
     Indication: HYPERTENSION
     Route: 048
     Dates: start: 20080604

REACTIONS (1)
  - OTITIS MEDIA ACUTE [None]
